FAERS Safety Report 9568715 (Version 1)
Quarter: 2013Q3

REPORT INFORMATION
  Report Type: Spontaneous
  Country: US (occurrence: US)
  Receive Date: 20130930
  Receipt Date: 20130930
  Transmission Date: 20140515
  Serious: No
  Sender: FDA-Public Use
  Company Number: US-AMGEN-USASP2013060687

PATIENT
  Age: 50 Year
  Sex: Male
  Weight: 147.39 kg

DRUGS (9)
  1. ENBREL [Suspect]
     Indication: PRODUCT USED FOR UNKNOWN INDICATION
     Dosage: 50 MG, QWK
     Route: 058
  2. METHOTREXATE [Concomitant]
     Dosage: 2.5 MG, UNK
     Route: 048
  3. NABUMETONE [Concomitant]
     Dosage: 750 MG, UNK
     Route: 048
  4. LANSOPRAZOLE [Concomitant]
     Dosage: 15 MG, DR
     Route: 048
  5. FOLIC ACID [Concomitant]
     Dosage: 1 MG, UNK
     Route: 048
  6. CETIRIZINE [Concomitant]
     Dosage: 10 MG, UNK
     Route: 048
  7. ATORVASTATIN [Concomitant]
     Dosage: 80 MG, UNK
     Route: 048
  8. LOSARTAN POTASSIUM [Concomitant]
     Dosage: 50 MG, UNK
     Route: 048
  9. MULTIVITAMINS, PLAIN [Concomitant]
     Dosage: UNK
     Route: 048

REACTIONS (1)
  - Drug ineffective [Unknown]
